FAERS Safety Report 11496281 (Version 1)
Quarter: 2015Q3

REPORT INFORMATION
  Report Type: Spontaneous
  Country: MY (occurrence: MY)
  Receive Date: 20150911
  Receipt Date: 20150911
  Transmission Date: 20151125
  Serious: Yes (Death)
  Sender: FDA-Public Use
  Company Number: MY-PFIZER INC-2015304357

PATIENT
  Age: 50 Year
  Sex: Female

DRUGS (1)
  1. CELEBREX [Suspect]
     Active Substance: CELECOXIB
     Dosage: 200 MG, 2X/DAY

REACTIONS (4)
  - Gastrointestinal haemorrhage [Fatal]
  - Drug ineffective [Unknown]
  - Hypovolaemic shock [Fatal]
  - Cardiac arrest [Fatal]
